FAERS Safety Report 5865230-0 (Version None)
Quarter: 2008Q3

REPORT INFORMATION
  Report Type: 
  Country: None (occurrence: None)
  Receive Date: 20080829
  Receipt Date: 20080826
  Transmission Date: 20090109
  Serious: Yes (Hospitalization)
  Sender: FDA-Public Use
  Company Number: B0534439A

PATIENT
  Age: 68 Year
  Sex: Female

DRUGS (8)
  1. AMOXICILLIN [Suspect]
     Indication: TOOTH DISORDER
     Dosage: 2G PER DAY
     Route: 048
     Dates: start: 20080430, end: 20080504
  2. LAMISIL [Suspect]
     Indication: DRUG USE FOR UNKNOWN INDICATION
     Dosage: 1TAB PER DAY
     Route: 048
     Dates: start: 20080226, end: 20080310
  3. OXAZEPAM [Concomitant]
     Indication: DRUG USE FOR UNKNOWN INDICATION
     Dosage: 60MG PER DAY
     Route: 065
  4. ZYPREXA [Concomitant]
     Indication: DRUG USE FOR UNKNOWN INDICATION
     Dosage: 10MG PER DAY
     Route: 065
  5. NOZINAN [Concomitant]
     Indication: DRUG USE FOR UNKNOWN INDICATION
     Dosage: 80DROP PER DAY
     Route: 065
  6. ATARAX [Concomitant]
     Indication: DRUG USE FOR UNKNOWN INDICATION
     Dosage: 200MG PER DAY
     Route: 065
  7. PARKINANE LP [Concomitant]
     Indication: DRUG USE FOR UNKNOWN INDICATION
     Dosage: 5MG PER DAY
     Route: 065
  8. DIHYDROERGOTAMINE [Concomitant]
     Indication: DRUG USE FOR UNKNOWN INDICATION
     Dosage: 90DROP PER DAY
     Route: 065

REACTIONS (5)
  - CERULOPLASMIN DECREASED [None]
  - HEPATITIS ACUTE [None]
  - HEPATOCELLULAR INJURY [None]
  - HYPOALBUMINAEMIA [None]
  - SERUM FERRITIN INCREASED [None]
